FAERS Safety Report 22208617 (Version 2)
Quarter: 2023Q2

REPORT INFORMATION
  Report Type: Report from Study
  Country: US (occurrence: US)
  Receive Date: 20230413
  Receipt Date: 20230414
  Transmission Date: 20230722
  Serious: Yes (Other)
  Sender: FDA-Public Use
  Company Number: US-SHIRE-US202005920

PATIENT
  Sex: Female
  Weight: 70.31 kg

DRUGS (1)
  1. HUMAN IMMUNOGLOBULIN G\HYALURONIDASE RECOMBINANT HUMAN [Suspect]
     Active Substance: HUMAN IMMUNOGLOBULIN G\HYALURONIDASE RECOMBINANT HUMAN
     Indication: Immunodeficiency common variable
     Dosage: 40 GRAM, Q4WEEKS
     Route: 065
     Dates: start: 2017

REACTIONS (8)
  - Nephrolithiasis [Unknown]
  - Clostridium difficile infection [Unknown]
  - Device issue [Unknown]
  - Device breakage [Unknown]
  - Urinary tract infection [Unknown]
  - Fatigue [Unknown]
  - Product administration interrupted [Unknown]
  - Incorrect dose administered by device [Unknown]
